FAERS Safety Report 10977150 (Version 1)
Quarter: 2015Q1

REPORT INFORMATION
  Report Type: Spontaneous
  Country: US (occurrence: None)
  Receive Date: 20150330
  Receipt Date: 20150330
  Transmission Date: 20150721
  Serious: Yes (Death, Hospitalization)
  Sender: FDA-Public Use
  Company Number: INT_00723_2015

PATIENT
  Age: 52 Year
  Sex: Female

DRUGS (1)
  1. PACLITAXEL (HQ SPECIALTY) [Suspect]
     Active Substance: PACLITAXEL
     Indication: BREAST CANCER
     Dosage: A SINGLE DOSE OF PACLITAXEL, A WEEKLY DOSE OF 80 MG/M2

REACTIONS (15)
  - Pneumonia [None]
  - Tumour lysis syndrome [None]
  - Hyperphosphataemia [None]
  - Electrolyte imbalance [None]
  - Blood lactate dehydrogenase increased [None]
  - Haemodialysis [None]
  - General physical health deterioration [None]
  - Hepatic enzyme increased [None]
  - Rhabdomyolysis [None]
  - Hyperuricaemia [None]
  - Oliguria [None]
  - Hyperkalaemia [None]
  - Acute kidney injury [None]
  - Metabolic encephalopathy [None]
  - Cardiopulmonary failure [None]
